FAERS Safety Report 5543601-X (Version None)
Quarter: 2007Q4

REPORT INFORMATION
  Report Type: 
  Country: None (occurrence: None)
  Receive Date: 20071206
  Receipt Date: 20071121
  Transmission Date: 20080405
  Serious: Yes (Death, Hospitalization)
  Sender: FDA-Public Use
  Company Number: 2007AP001378

PATIENT
  Age: 56 Year
  Sex: Male

DRUGS (4)
  1. CYCLOSPORINE [Suspect]
     Indication: RENAL TRANSPLANT
     Dosage: 100 MG;QD
     Dates: end: 20050101
  2. PREDNISONE [Suspect]
     Indication: RENAL TRANSPLANT
     Dosage: 5 MG;QD
  3. MYCOPHENOLATE MOFETIL [Suspect]
     Indication: RENAL TRANSPLANT
     Dosage: 750 MG;BID, 250 MG;BID;PO
     Route: 047
     Dates: end: 20051001
  4. MYCOPHENOLATE MOFETIL [Suspect]
     Indication: RENAL TRANSPLANT
     Dosage: 750 MG;BID, 250 MG;BID;PO
     Route: 047
     Dates: start: 20051001

REACTIONS (9)
  - DIARRHOEA [None]
  - ENCEPHALITIS VIRAL [None]
  - GRAND MAL CONVULSION [None]
  - NAUSEA [None]
  - NO THERAPEUTIC RESPONSE [None]
  - PNEUMONIA VIRAL [None]
  - STATUS EPILEPTICUS [None]
  - VOMITING [None]
  - WEST NILE VIRAL INFECTION [None]
